FAERS Safety Report 4392036-4 (Version None)
Quarter: 2004Q3

REPORT INFORMATION
  Report Type: 
  Country: None (occurrence: None)
  Receive Date: 20040708
  Receipt Date: 20040621
  Transmission Date: 20050211
  Serious: Yes (Other)
  Sender: FDA-Public Use
  Company Number: PHBS2004CA08422

PATIENT
  Sex: Female

DRUGS (1)
  1. GLEEVEC [Suspect]
     Route: 065

REACTIONS (3)
  - ARTHRITIS [None]
  - INTERVERTEBRAL DISC DEGENERATION [None]
  - PAIN [None]
